FAERS Safety Report 17628371 (Version 2)
Quarter: 2020Q2

REPORT INFORMATION
  Report Type: Report from Study
  Country: GB (occurrence: GB)
  Receive Date: 20200406
  Receipt Date: 20200620
  Transmission Date: 20200713
  Serious: Yes (Other)
  Sender: FDA-Public Use
  Company Number: GB-AMGEN-GBRSP2020055358

PATIENT
  Age: 29 Year
  Sex: Male

DRUGS (2)
  1. AIMOVIG [Suspect]
     Active Substance: ERENUMAB-AOOE
     Indication: MIGRAINE
     Dosage: 70 MG
     Route: 065
  2. AIMOVIG [Suspect]
     Active Substance: ERENUMAB-AOOE
     Dosage: 70 MG, QW4
     Route: 058
     Dates: start: 20200326, end: 20200326

REACTIONS (19)
  - Nausea [Unknown]
  - Hypersensitivity [Recovered/Resolved]
  - Agitation [Unknown]
  - Feeling abnormal [Unknown]
  - Dyspnoea [Unknown]
  - Secretion discharge [Unknown]
  - Oropharyngeal pain [Unknown]
  - Depression [Unknown]
  - Paraesthesia oral [Unknown]
  - Anxiety [Unknown]
  - Muscle twitching [Unknown]
  - Pruritus [Unknown]
  - Diarrhoea [Unknown]
  - Panic disorder [Unknown]
  - Cerebral disorder [Unknown]
  - Dizziness [Unknown]
  - Heart rate increased [Unknown]
  - Feeling of body temperature change [Unknown]
  - Syncope [Unknown]

NARRATIVE: CASE EVENT DATE: 20200327
